FAERS Safety Report 6991249-2 (Version None)
Quarter: 2010Q3

REPORT INFORMATION
  Report Type: 
  Country: None (occurrence: None)
  Receive Date: 20100916
  Receipt Date: 20081010
  Transmission Date: 20110219
  Serious: No
  Sender: FDA-Public Use
  Company Number: US-WYE-H06347808

PATIENT
  Age: 46 Year
  Sex: Female

DRUGS (2)
  1. PREMARIN [Suspect]
     Indication: MENOPAUSAL SYMPTOMS
     Route: 048
     Dates: start: 20040101
  2. PREMARIN [Suspect]
     Route: 048
     Dates: start: 20070101

REACTIONS (1)
  - COELIAC DISEASE [None]
